FAERS Safety Report 14283996 (Version 1)
Quarter: 2017Q4

REPORT INFORMATION
  Report Type: Report from Study
  Country: US (occurrence: US)
  Receive Date: 20171214
  Receipt Date: 20171214
  Transmission Date: 20180321
  Serious: Yes (Other)
  Sender: FDA-Public Use
  Company Number: US-ROCHE-2032658

PATIENT
  Sex: Male

DRUGS (7)
  1. LISINOPRIL. [Concomitant]
     Active Substance: LISINOPRIL
     Route: 048
  2. SYNTHROID [Concomitant]
     Active Substance: LEVOTHYROXINE SODIUM
     Route: 048
  3. MELOXICAM. [Concomitant]
     Active Substance: MELOXICAM
     Dosage: 1 TABLET DAILY AT BEDTIME
     Route: 048
  4. PANTOPRAZOLE SODIUM. [Concomitant]
     Active Substance: PANTOPRAZOLE SODIUM
     Dosage: 1 TABLET 30 MIN BEFORE BREAKFAST DAILY
     Route: 048
  5. CELLCEPT [Suspect]
     Active Substance: MYCOPHENOLATE MOFETIL\MYCOPHENOLATE MOFETIL HYDROCHLORIDE
     Indication: DERMATOMYOSITIS
     Dosage: ONE TABLET BY MOUTH TWICE A DAY
     Route: 048
  6. CREON [Concomitant]
     Active Substance: PANCRELIPASE AMYLASE\PANCRELIPASE LIPASE\PANCRELIPASE PROTEASE
     Dosage: 24000 UNIT CAPSULE, 1 CAPSULE 3 TIMES DAILY
     Route: 048
  7. CLARITIN (UNITED STATES) [Concomitant]
     Route: 048

REACTIONS (12)
  - Intentional product use issue [Unknown]
  - Off label use [Unknown]
  - Dysstasia [Unknown]
  - Aldolase decreased [Unknown]
  - Joint stiffness [Unknown]
  - Fatigue [Unknown]
  - Weight increased [Unknown]
  - Arthralgia [Unknown]
  - Cushingoid [Unknown]
  - C-reactive protein increased [Unknown]
  - Muscular weakness [Unknown]
  - Pain [Unknown]
